FAERS Safety Report 20166900 (Version 1)
Quarter: 2021Q4

REPORT INFORMATION
  Report Type: Report from Study
  Country: US (occurrence: US)
  Receive Date: 20211209
  Receipt Date: 20211209
  Transmission Date: 20220303
  Serious: Yes (Other)
  Sender: FDA-Public Use
  Company Number: US-BAYER-2021A263687

PATIENT
  Age: 15 Year
  Sex: Male

DRUGS (1)
  1. STIVARGA [Suspect]
     Active Substance: REGORAFENIB
     Indication: Osteosarcoma
     Dosage: 160 MG, QD, FOR 21 DAYS ON AND 7 DAYS OFF AFTER A LOW FAT MEAL
     Route: 048
     Dates: start: 20211130

REACTIONS (3)
  - Dehydration [Not Recovered/Not Resolved]
  - Decreased appetite [None]
  - Off label use [Not Recovered/Not Resolved]

NARRATIVE: CASE EVENT DATE: 20211130
